FAERS Safety Report 14260066 (Version 1)
Quarter: 2017Q4

REPORT INFORMATION
  Report Type: Spontaneous
  Country: US (occurrence: US)
  Receive Date: 20171207
  Receipt Date: 20171207
  Transmission Date: 20180321
  Serious: No
  Sender: FDA-Public Use
  Company Number: US-VIFOR (INTERNATIONAL) INC.-VIT-2017-10267

PATIENT
  Sex: Female

DRUGS (16)
  1. SIMVASTATIN. [Concomitant]
     Active Substance: SIMVASTATIN
  2. RENVELA [Concomitant]
     Active Substance: SEVELAMER CARBONATE
  3. CARVEDILOL. [Concomitant]
     Active Substance: CARVEDILOL
  4. NIFEDIPINE. [Concomitant]
     Active Substance: NIFEDIPINE
  5. TOCOPHEROL [Concomitant]
     Active Substance: TOCOPHEROL
  6. TIMOLOL MALEATE~~DORZOLAMIDE HYDROCHLORIDE [Concomitant]
  7. NEPHRO-VITE [Concomitant]
  8. LATANOPROST. [Concomitant]
     Active Substance: LATANOPROST
  9. SODIUM BICARBONATE. [Concomitant]
     Active Substance: SODIUM BICARBONATE
  10. SENSIPAR [Concomitant]
     Active Substance: CINACALCET HYDROCHLORIDE
  11. COLECALCIFEROL [Concomitant]
     Active Substance: CHOLECALCIFEROL
  12. CLONIDINE HYDROCHLORIDE. [Concomitant]
     Active Substance: CLONIDINE HYDROCHLORIDE
  13. VELTASSA [Suspect]
     Active Substance: PATIROMER
     Indication: HYPERKALAEMIA
     Route: 048
     Dates: start: 20170223
  14. ASCORBIC ACID. [Concomitant]
     Active Substance: ASCORBIC ACID
  15. GLUCOSAMINE HYDROCHLORIDE~~GLUCOSAMINE SULFATE [Concomitant]
  16. GARLIC. [Concomitant]
     Active Substance: GARLIC

REACTIONS (2)
  - Blood potassium increased [Unknown]
  - Constipation [Unknown]

NARRATIVE: CASE EVENT DATE: 2017
